FAERS Safety Report 5304934-5 (Version None)
Quarter: 2007Q2

REPORT INFORMATION
  Report Type: 
  Country: None (occurrence: None)
  Receive Date: 20070416
  Receipt Date: 20070403
  Transmission Date: 20071010
  Serious: Yes (Hospitalization)
  Sender: FDA-Public Use
  Company Number: 2007-156767-NL

PATIENT
  Age: 27 Year
  Sex: Female

DRUGS (6)
  1. HUMAN CHORIONIC GONADOTROPIN [Suspect]
     Indication: INFERTILITY
     Dosage: 10000 IU ONCE
  2. GONAL-F [Suspect]
     Dosage: 225 IU DAILY
  3. GONAL-F [Suspect]
     Dosage: 150 IU DAILY
  4. GONAL-F [Suspect]
     Dosage: 225 IU DAILY
  5. REPRONEX [Suspect]
  6. LUPRON [Concomitant]

REACTIONS (9)
  - DRUG INEFFECTIVE [None]
  - FLATULENCE [None]
  - HAEMATOMA [None]
  - HYDRONEPHROSIS [None]
  - HYDROURETER [None]
  - INFECTION [None]
  - OVARIAN ENLARGEMENT [None]
  - POST PROCEDURAL COMPLICATION [None]
  - URETERIC OBSTRUCTION [None]
